FAERS Safety Report 23525631 (Version 3)
Quarter: 2024Q1

REPORT INFORMATION
  Report Type: Report from Study
  Country: US (occurrence: US)
  Receive Date: 20240215
  Receipt Date: 20240227
  Transmission Date: 20240410
  Serious: Yes (Hospitalization, Other)
  Sender: FDA-Public Use
  Company Number: US-SANOFI-01942800

PATIENT
  Age: 63 Year
  Sex: Female

DRUGS (1)
  1. KEVZARA [Suspect]
     Active Substance: SARILUMAB
     Indication: Rheumatoid arthritis
     Dosage: 200 MG, 1X
     Route: 058
     Dates: start: 20240118, end: 20240118

REACTIONS (2)
  - Acute kidney injury [Unknown]
  - Tremor [Unknown]

NARRATIVE: CASE EVENT DATE: 20240101
